FAERS Safety Report 10563741 (Version 1)
Quarter: 2014Q4

REPORT INFORMATION
  Report Type: Spontaneous
  Country: US (occurrence: None)
  Receive Date: 20141103
  Receipt Date: 20141103
  Transmission Date: 20150529
  Serious: Yes (Other)
  Sender: FDA-Public Use
  Company Number: None

PATIENT
  Age: 45 Year
  Sex: Female

DRUGS (1)
  1. VENLAFAXINE ER 150MG OSMOTICA PHARMACEUTICAL [Suspect]
     Active Substance: VENLAFAXINE HYDROCHLORIDE
     Dosage: 2 TABLETS
     Route: 048
     Dates: start: 20140929, end: 20141030

REACTIONS (14)
  - Drug ineffective [None]
  - Depressed mood [None]
  - Product substitution issue [None]
  - Emotional disorder [None]
  - Agitation [None]
  - Feeling abnormal [None]
  - Medication residue present [None]
  - Sexual abuse [None]
  - Depression [None]
  - Anxiety [None]
  - Irritability [None]
  - Nausea [None]
  - Aggression [None]
  - Breast cancer [None]

NARRATIVE: CASE EVENT DATE: 20141001
